FAERS Safety Report 11130645 (Version 1)
Quarter: 2015Q2

REPORT INFORMATION
  Report Type: Spontaneous
  Country: US (occurrence: None)
  Receive Date: 20150521
  Receipt Date: 20150521
  Transmission Date: 20150821
  Serious: Yes (Life-Threatening, Hospitalization, Disabling)
  Sender: FDA-Public Use
  Company Number: None

PATIENT
  Age: 79 Year
  Sex: Female
  Weight: 43.09 kg

DRUGS (8)
  1. HYDROCODEN [Concomitant]
  2. VITAMIN B12 [Concomitant]
     Active Substance: CYANOCOBALAMIN
  3. VITAMIN-D3 [Concomitant]
  4. ALPRAZOLAM. [Concomitant]
     Active Substance: ALPRAZOLAM
  5. MUPIROCUROIN [Concomitant]
  6. TYGACIL [Suspect]
     Active Substance: TIGECYCLINE
     Indication: PRODUCT USED FOR UNKNOWN INDICATION
     Dosage: INJECTION IN RIGHT ARM
     Dates: start: 20141007
  7. KETOCONAZONE [Concomitant]
  8. FLUTICASEONE PROPIONATE CREAM [Concomitant]

REACTIONS (3)
  - Oral disorder [None]
  - Nasal disorder [None]
  - Pyrexia [None]
